FAERS Safety Report 7887782-1 (Version None)
Quarter: 2011Q4

REPORT INFORMATION
  Report Type: 
  Country: None (occurrence: None)
  Receive Date: 20111101
  Receipt Date: 20111018
  Transmission Date: 20120403
  Serious: Yes (Hospitalization)
  Sender: FDA-Public Use
  Company Number: TCI2011A04492

PATIENT
  Age: 77 Year
  Sex: Male

DRUGS (3)
  1. PRAVASTATIN [Concomitant]
  2. SEIBULE (MIGLITOL) [Concomitant]
  3. ACTOS [Suspect]
     Indication: DIABETES MELLITUS
     Dosage: 30 MG (30 MG, 1 IN 1 D), PER ORAL
     Route: 048
     Dates: start: 20060210, end: 20110624

REACTIONS (1)
  - BLADDER CANCER [None]
